FAERS Safety Report 7146560-1 (Version None)
Quarter: 2010Q4

REPORT INFORMATION
  Report Type: 
  Country: None (occurrence: None)
  Receive Date: 20101208
  Receipt Date: 20101129
  Transmission Date: 20110411
  Serious: Yes (Hospitalization, Other)
  Sender: FDA-Public Use
  Company Number: US-CELGENEUS-163-21880-10091970

PATIENT
  Sex: Male
  Weight: 63.7 kg

DRUGS (23)
  1. REVLIMID [Suspect]
     Indication: MULTIPLE MYELOMA
     Route: 048
     Dates: start: 20100826, end: 20100101
  2. REVLIMID [Suspect]
     Route: 048
     Dates: start: 20100923, end: 20101006
  3. REVLIMID [Suspect]
     Route: 048
     Dates: start: 20101001
  4. REVLIMID [Suspect]
     Route: 048
     Dates: start: 20101111, end: 20101202
  5. DEXAMETHASONE [Concomitant]
     Indication: MULTIPLE MYELOMA
     Route: 048
     Dates: start: 20100811
  6. HYDROCHLOROTHIAZIDE [Concomitant]
     Route: 065
  7. LISINOPRIL [Concomitant]
     Route: 065
  8. PREDNISONE [Concomitant]
     Route: 065
  9. METOPROLOL [Concomitant]
     Indication: HYPERTENSION
     Route: 048
  10. METOPROLOL [Concomitant]
     Route: 048
  11. WARFARIN SODIUM [Concomitant]
     Route: 065
  12. MECLIZINE [Concomitant]
     Route: 065
  13. POTASSIUM CHLORIDE [Concomitant]
     Route: 048
  14. COMPAZINE [Concomitant]
     Indication: NAUSEA
     Route: 048
  15. VICODIN [Concomitant]
     Route: 065
  16. COUMADIN [Concomitant]
     Route: 065
  17. AREDIA [Concomitant]
     Route: 065
  18. ALENDRONATE [Concomitant]
     Route: 048
  19. CYANOCOBALAMIN [Concomitant]
     Dosage: 1000 MCG/ML
     Route: 030
  20. SENNA S [Concomitant]
     Route: 048
  21. HYDROCODONE BITARTRATE AND ACETAMINOPHEN [Concomitant]
     Indication: PAIN
     Dosage: 500MG-5MG
     Route: 048
  22. CALCIUM PLUS VITAMIN D [Concomitant]
     Route: 048
  23. VITAMIN D [Concomitant]
     Route: 048

REACTIONS (7)
  - ASTHENIA [None]
  - DIZZINESS [None]
  - FALL [None]
  - FATIGUE [None]
  - FEMUR FRACTURE [None]
  - PROTHROMBIN TIME PROLONGED [None]
  - THROMBOCYTOPENIA [None]
